FAERS Safety Report 6442061-4 (Version None)
Quarter: 2009Q4

REPORT INFORMATION
  Report Type: 
  Country: None (occurrence: None)
  Receive Date: 20091116
  Receipt Date: 20091103
  Transmission Date: 20100525
  Serious: Yes (Other)
  Sender: FDA-Public Use
  Company Number: PHHY2009FI47949

PATIENT
  Age: 31 Year
  Sex: Female

DRUGS (5)
  1. CYCLOSPORINE [Suspect]
     Indication: JUVENILE ARTHRITIS
     Dosage: 100 MG/DAY
  2. INFLIXIMAB [Concomitant]
     Indication: JUVENILE ARTHRITIS
     Dosage: 3 MG/KG
     Route: 042
  3. INFLIXIMAB [Concomitant]
     Dosage: 3 MG/KG, EVERY 8 WEEKS
     Route: 042
  4. PREDNISOLONE [Concomitant]
     Indication: JUVENILE ARTHRITIS
     Dosage: 5 MG/DAY
  5. SULFASALAZINE [Concomitant]
     Indication: JUVENILE ARTHRITIS
     Dosage: 2000 MG/DAY

REACTIONS (4)
  - DYSPNOEA [None]
  - HYPERSENSITIVITY [None]
  - PRURITUS [None]
  - RASH [None]
